FAERS Safety Report 25817609 (Version 4)
Quarter: 2025Q4

REPORT INFORMATION
  Report Type: Spontaneous
  Country: JP (occurrence: JP)
  Receive Date: 20250918
  Receipt Date: 20251204
  Transmission Date: 20260118
  Serious: Yes (Other)
  Sender: MERCK SHARP & DOHME LLC
  Company Number: JP-MSD-M2024-20308

PATIENT
  Age: 79 Year
  Sex: Male

DRUGS (5)
  1. KEYTRUDA [Suspect]
     Active Substance: PEMBROLIZUMAB
     Indication: Renal cell carcinoma
     Dosage: DOSE DESCRIPTION : 200 MILLIGRAM, Q3W?DAILY DOSE : 9.4 MILLIGRAM?REGIMEN DOSE : 200  MILLIGRAM
     Route: 041
  2. MICARDIS [Concomitant]
     Active Substance: TELMISARTAN
     Dosage: DOSE DESCRIPTION : UNK
     Route: 065
  3. MAGNESIUM OXIDE [Concomitant]
     Active Substance: MAGNESIUM OXIDE
     Dosage: DOSE DESCRIPTION : UNK
     Route: 065
  4. SODIUM FERROUS CITRATE [Concomitant]
     Active Substance: SODIUM FERROUS CITRATE
     Dosage: DOSE DESCRIPTION : UNK
     Route: 065
  5. LENVATINIB MESYLATE [Suspect]
     Active Substance: LENVATINIB MESYLATE
     Dosage: 14 MG, QD
     Route: 048

REACTIONS (7)
  - Malignant neoplasm progression [Unknown]
  - Coronavirus infection [Unknown]
  - Hypertension [Recovered/Resolved]
  - Hypothyroidism [Unknown]
  - Nephrectomy [Unknown]
  - Therapy partial responder [Unknown]
  - Palmar-plantar erythrodysaesthesia syndrome [Unknown]

NARRATIVE: CASE EVENT DATE: 20250201
